FAERS Safety Report 4832791-X (Version None)
Quarter: 2005Q4

REPORT INFORMATION
  Report Type: 
  Country: None (occurrence: None)
  Receive Date: 20051117
  Receipt Date: 20051108
  Transmission Date: 20060501
  Serious: Yes (Other)
  Sender: FDA-Public Use
  Company Number: USA0510109759

PATIENT
  Age: 7 Year
  Sex: Male
  Weight: 31 kg

DRUGS (2)
  1. STRATTERA [Suspect]
     Indication: ATTENTION DEFICIT/HYPERACTIVITY DISORDER
     Dosage: 25 MG
     Dates: start: 20041004, end: 20051006
  2. BACLOFEN [Concomitant]

REACTIONS (4)
  - BRUXISM [None]
  - SCREAMING [None]
  - SUICIDAL IDEATION [None]
  - SUICIDE ATTEMPT [None]
